FAERS Safety Report 15705218 (Version 2)
Quarter: 2019Q1

REPORT INFORMATION
  Report Type: Report from Study
  Country: US (occurrence: US)
  Receive Date: 20181210
  Receipt Date: 20190107
  Transmission Date: 20190417
  Serious: Yes (Other)
  Sender: FDA-Public Use
  Company Number: US-BAYER-2018-176411

PATIENT
  Age: 68 Year
  Sex: Male

DRUGS (1)
  1. NEXAVAR [Suspect]
     Active Substance: SORAFENIB
     Indication: HEPATOCELLULAR CARCINOMA
     Dosage: 200 MG, BID
     Route: 048
     Dates: start: 20180915

REACTIONS (12)
  - Product dose omission [None]
  - Fatigue [None]
  - Product dose omission [None]
  - Blood pressure increased [None]
  - Peripheral swelling [Recovering/Resolving]
  - Product availability issue [None]
  - Gout [None]
  - Increased appetite [None]
  - Fatigue [Recovering/Resolving]
  - Arthralgia [None]
  - Off label use [None]
  - Epistaxis [None]

NARRATIVE: CASE EVENT DATE: 2018
